FAERS Safety Report 5851430-2 (Version None)
Quarter: 2008Q3

REPORT INFORMATION
  Report Type: 
  Country: None (occurrence: None)
  Receive Date: 20080820
  Receipt Date: 20080811
  Transmission Date: 20090109
  Serious: Yes (Hospitalization)
  Sender: FDA-Public Use
  Company Number: FR-BRISTOL-MYERS SQUIBB COMPANY-14306377

PATIENT
  Age: 48 Year
  Sex: Male

DRUGS (3)
  1. HOLOXAN [Suspect]
     Indication: EWING'S SARCOMA
     Dosage: 1ST COURSE: 04-DEC-2007 TO UNKNOWN,AS NEEDED. 2ND COURSE: 4380 MG, IV,EVERYDAY, 08JAN08-12JAN08.
     Route: 042
     Dates: start: 20080108, end: 20080112
  2. ETOPOSIDE [Suspect]
     Indication: EWING'S SARCOMA
     Dosage: 1ST COURSE: 04-DEC-2007 TO UNKNOWN,AS NEEDED. 2ND COURSE: 230 MG, IV, QD, 08JAN08-10JAN08.
     Route: 042
     Dates: start: 20080108, end: 20080110
  3. NEUPOGEN [Concomitant]

REACTIONS (2)
  - ANAEMIA [None]
  - PNEUMOTHORAX [None]
